FAERS Safety Report 5235162-X (Version None)
Quarter: 2007Q1

REPORT INFORMATION
  Report Type: 
  Country: None (occurrence: None)
  Receive Date: 20070207
  Receipt Date: 20070129
  Transmission Date: 20070707
  Serious: Yes (Hospitalization)
  Sender: FDA-Public Use
  Company Number: 2007SP001757

PATIENT
  Age: 72 Year
  Sex: Male

DRUGS (3)
  1. DIPROSALIC (BETAMETHASONE DIPROPIONATE/SALICYLIC ACID) (BETAMETHASONE [Suspect]
     Indication: PSORIASIS
     Dosage: ; PRN; TOP
     Route: 061
     Dates: start: 19960615, end: 20061113
  2. ALDACTAZINE (ALDACTAZINE) [Suspect]
     Indication: HYPERTENSION
     Dosage: 0.5 DF; QD; PO
     Route: 048
     Dates: start: 19960615, end: 20061115
  3. ISOPTIN [Suspect]
     Indication: DRUG USE FOR UNKNOWN INDICATION
     Dosage: 240 MG; QD; PO
     Route: 048
     Dates: start: 19960615

REACTIONS (7)
  - CONDITION AGGRAVATED [None]
  - ECZEMA [None]
  - EXFOLIATIVE RASH [None]
  - IMPETIGO [None]
  - PHOTODERMATOSIS [None]
  - PSORIASIS [None]
  - RASH ERYTHEMATOUS [None]
